FAERS Safety Report 5815028-4 (Version None)
Quarter: 2008Q3

REPORT INFORMATION
  Report Type: 
  Country: None (occurrence: None)
  Receive Date: 20080718
  Receipt Date: 20080710
  Transmission Date: 20090109
  Serious: Yes (Death)
  Sender: FDA-Public Use
  Company Number: B0528576A

PATIENT
  Age: 53 Year
  Sex: Female

DRUGS (26)
  1. CEFTAZIDIME SODIUM [Suspect]
     Route: 042
  2. INSULIN [Suspect]
     Route: 042
  3. PROPOFOL [Suspect]
     Route: 042
  4. MIDAZOLAM HCL [Suspect]
     Route: 042
  5. KETAMINE HYDROCHLORIDE [Suspect]
     Route: 042
  6. FENTANYL CITRATE [Suspect]
     Route: 042
  7. NICARDIPINE HYDROCHLORIDE [Suspect]
     Route: 042
  8. FAMOTIDINE [Suspect]
     Route: 042
  9. CEFAZOLIN SODIUM [Suspect]
     Route: 042
  10. TEICOPLANIN [Suspect]
     Route: 042
  11. VANCOMYCIN HYDROCHLORIDE [Suspect]
     Route: 042
  12. NEOSTIGMINE [Suspect]
     Route: 042
  13. ASCORBIC ACID [Suspect]
     Route: 042
  14. CALCIUM GLUCONATE [Suspect]
     Route: 042
  15. POTASSIUM CHLORIDE [Suspect]
     Route: 042
  16. FUROSEMIDE [Suspect]
     Route: 042
  17. POTASSIUM CANRENOATE [Suspect]
     Route: 042
  18. BIFIDOBACTERIUM [Suspect]
     Route: 048
  19. VITAMIN [Suspect]
     Route: 042
  20. PANTHENOL [Suspect]
     Route: 042
  21. NIFEDIPINE [Suspect]
     Route: 048
  22. FAMOTIDINE [Suspect]
     Route: 048
  23. VECURONIUM BROMIDE [Suspect]
     Route: 042
  24. ATROPINE SULFATE [Suspect]
     Route: 042
  25. NITROUS OXIDE [Suspect]
     Route: 055
  26. SEVOFLURANE [Suspect]
     Route: 055

REACTIONS (6)
  - BLISTER [None]
  - ERYTHEMA [None]
  - ERYTHEMA MULTIFORME [None]
  - LYMPHOCYTIC INFILTRATION [None]
  - MUCOSAL EROSION [None]
  - TOXIC EPIDERMAL NECROLYSIS [None]
